FAERS Safety Report 9579914 (Version 3)
Quarter: 2014Q1

REPORT INFORMATION
  Report Type: Spontaneous
  Country: GB (occurrence: None)
  Receive Date: 20130930
  Receipt Date: 20140212
  Transmission Date: 20141002
  Serious: Yes (Other)
  Sender: FDA-Public Use
  Company Number: GB-ALKEM-000143

PATIENT
  Age: 45 Year
  Sex: Female

DRUGS (8)
  1. MYCOPHENOLATE MOFETIL (MYCOPHENOLATE MOFETIL) [Suspect]
     Indication: MIXED CONNECTIVE TISSUE DISEASE
     Dosage: 2.00000000-G-1.00. TIMES PER-1.0DAYS
  2. LANSOPRAZOLE (LANSOPRAZOLE) [Concomitant]
  3. ASPIRIN (ASPIRIN) [Concomitant]
  4. PREDNISOLONE (PREDNISOLONE) [Concomitant]
  5. AMLODIPINE (AMLODIPINE) [Concomitant]
  6. LISINOPRIL (LISINOPRIL) [Concomitant]
  7. IRON [Concomitant]
  8. WARFARIN [Concomitant]

REACTIONS (4)
  - International normalised ratio increased [None]
  - Blood blister [None]
  - Conjunctival haemorrhage [None]
  - Haemorrhage [None]
